FAERS Safety Report 10725620 (Version 2)
Quarter: 2015Q3

REPORT INFORMATION
  Report Type: Report from Study
  Country: CA (occurrence: CA)
  Receive Date: 20150121
  Receipt Date: 20150702
  Transmission Date: 20151125
  Serious: Yes (Other)
  Sender: FDA-Public Use
  Company Number: CA-ASTRAZENECA-2015SE04419

PATIENT
  Age: 62 Year
  Sex: Male

DRUGS (9)
  1. CLINDAMYCIN [Concomitant]
     Active Substance: CLINDAMYCIN\CLINDAMYCIN PHOSPHATE
     Dosage: AS REQUIRED
  2. EMOCORT [Concomitant]
     Dosage: AS REQUIRED
  3. RIVA K SR [Concomitant]
     Dosage: TWO TIMES A DAY
     Route: 048
  4. MAGNESIUM ROUGHIER [Concomitant]
  5. CAPRELSA [Suspect]
     Active Substance: VANDETANIB
     Indication: MEDULLARY THYROID CANCER
     Route: 048
     Dates: start: 20131128, end: 20150605
  6. SILDENAFIL. [Concomitant]
     Active Substance: SILDENAFIL
     Dosage: AS REQUIRED
  7. CALCIUM [Concomitant]
     Active Substance: CALCIUM
     Route: 048
  8. LOPERAMIDE [Concomitant]
     Active Substance: LOPERAMIDE
  9. VITAMIN D [Concomitant]
     Active Substance: CHOLECALCIFEROL
     Route: 048

REACTIONS (3)
  - Malignant neoplasm progression [Unknown]
  - Renal pain [Not Recovered/Not Resolved]
  - Nephrolithiasis [Not Recovered/Not Resolved]

NARRATIVE: CASE EVENT DATE: 20150605
